FAERS Safety Report 17693609 (Version 1)
Quarter: 2020Q2

REPORT INFORMATION
  Report Type: Spontaneous
  Country: CN (occurrence: CN)
  Receive Date: 20200422
  Receipt Date: 20200422
  Transmission Date: 20200714
  Serious: Yes (Other)
  Sender: FDA-Public Use
  Company Number: NVSC2020CN105960

PATIENT
  Sex: Male

DRUGS (1)
  1. FINGOLIMOD. [Suspect]
     Active Substance: FINGOLIMOD
     Indication: MULTIPLE SCLEROSIS
     Route: 065

REACTIONS (4)
  - Expanded disability status scale score increased [Unknown]
  - Rebound effect [Unknown]
  - Withdrawal syndrome [Unknown]
  - Multiple sclerosis [Unknown]
